FAERS Safety Report 7763127-2 (Version None)
Quarter: 2011Q3

REPORT INFORMATION
  Report Type: 
  Country: None (occurrence: None)
  Receive Date: 20110920
  Receipt Date: 20110909
  Transmission Date: 20111222
  Serious: Yes (Other)
  Sender: FDA-Public Use
  Company Number: PHHY2009JP18411

PATIENT
  Sex: Male

DRUGS (8)
  1. AVELOX [Suspect]
     Indication: PNEUMONIA
     Dosage: 400 MG, DAILY
     Dates: start: 20100927, end: 20101003
  2. TASIGNA [Suspect]
     Dosage: 400 MG, DAILY
     Route: 048
     Dates: start: 20100201, end: 20101012
  3. TASIGNA [Suspect]
     Indication: CHRONIC MYELOID LEUKAEMIA
     Dosage: 400 MG DAILY
     Route: 048
     Dates: start: 20090424, end: 20090623
  4. TASIGNA [Suspect]
     Dosage: 800  MG DAILY
     Route: 048
     Dates: start: 20090624, end: 20091111
  5. TASIGNA [Suspect]
     Dosage: 200 MG, DAILY
     Route: 048
     Dates: start: 20101101
  6. LOXONIN [Concomitant]
     Indication: PNEUMONIA
     Dosage: 600 MG, DAILY
     Dates: start: 20100927, end: 20101003
  7. TASIGNA [Suspect]
     Dosage: 800  MG DAILY
     Route: 048
     Dates: start: 20091221, end: 20100118
  8. ROCEPHIN [Concomitant]
     Indication: PNEUMONIA
     Dosage: 2 G, DAILY

REACTIONS (5)
  - BLOOD CREATINE PHOSPHOKINASE INCREASED [None]
  - PYREXIA [None]
  - PNEUMONIA [None]
  - MYALGIA [None]
  - CONJUNCTIVITIS [None]
